FAERS Safety Report 7511236 (Version 2)
Quarter: 2014Q3

REPORT INFORMATION
  Report Type: Spontaneous
  Country: US (occurrence: None)
  Receive Date: 20100716
  Receipt Date: 20140926
  Transmission Date: 20150326
  Serious: Yes (Hospitalization, Other)
  Sender: FDA-Public Use
  Company Number: 2010S1004231

PATIENT
  Age: 63 Year
  Sex: Female

DRUGS (7)
  1. ATENOLOL. [Concomitant]
     Active Substance: ATENOLOL
  2. SYNTEST (,ETJU;TESTPSTERPME. ESTRPGENS ESTERIFIED) [Concomitant]
  3. CELEBREX [Concomitant]
     Active Substance: CELECOXIB
  4. ZETIA [Concomitant]
     Active Substance: EZETIMIBE
  5. HYZAAR [Concomitant]
     Active Substance: HYDROCHLOROTHIAZIDE\LOSARTAN POTASSIUM
  6. PHOSPHO-SODA [Suspect]
     Active Substance: SODIUM PHOSPHATE, DIBASIC\SODIUM PHOSPHATE, MONOBASIC
     Indication: COLONOSCOPY
     Dosage: PO
     Route: 048
     Dates: start: 20040726
  7. NIASPAN (NICOTINIC ACID) [Concomitant]

REACTIONS (16)
  - Renal transplant [None]
  - Dialysis [None]
  - Renal tubular necrosis [None]
  - Renal artery stenosis [None]
  - Escherichia urinary tract infection [None]
  - Abdominal pain upper [None]
  - Diverticulum intestinal [None]
  - Haemorrhoids [None]
  - Erythema [None]
  - Retching [None]
  - Arteriosclerosis [None]
  - Dehydration [None]
  - Pruritus [None]
  - Hypokalaemia [None]
  - Renal failure chronic [None]
  - Renal failure acute [None]

NARRATIVE: CASE EVENT DATE: 20040803
